FAERS Safety Report 5348342-X (Version None)
Quarter: 2007Q2

REPORT INFORMATION
  Report Type: 
  Country: None (occurrence: None)
  Receive Date: 20070605
  Receipt Date: 20070521
  Transmission Date: 20071010
  Serious: Yes (Death)
  Sender: FDA-Public Use
  Company Number: 8024240

PATIENT
  Age: 68 Year
  Sex: Female
  Weight: 90 kg

DRUGS (6)
  1. KEPPRA [Suspect]
     Dosage: 1000 MG TWICE IV
     Route: 042
     Dates: start: 20070131, end: 20070131
  2. KEPPRA [Suspect]
     Dosage: 500 MG TWICE IV
     Route: 042
     Dates: start: 20070201, end: 20070201
  3. THEOPHYLLINE [Concomitant]
  4. DOXEPIN /00138002/ [Concomitant]
  5. AMLODIPINE [Concomitant]
  6. ESOMEPRAZOLE MAGNESIUM [Concomitant]

REACTIONS (1)
  - CONVULSION [None]
